FAERS Safety Report 5027250-8 (Version None)
Quarter: 2006Q2

REPORT INFORMATION
  Report Type: 
  Country: None (occurrence: None)
  Receive Date: 20060612
  Receipt Date: 20060530
  Transmission Date: 20061013
  Serious: Yes (Hospitalization, Other)
  Sender: FDA-Public Use
  Company Number: HQWYE484410NOV05

PATIENT
  Age: 59 Year
  Sex: Female
  Weight: 73.55 kg

DRUGS (5)
  1. PREMPHASE 14/14 [Suspect]
  2. CYCRIN [Suspect]
  3. PREFEST [Suspect]
  4. PREMARIN [Suspect]
  5. PROVERA [Suspect]

REACTIONS (7)
  - BREAST CANCER IN SITU [None]
  - BREAST CANCER METASTATIC [None]
  - LUNG ADENOCARCINOMA METASTATIC [None]
  - METASTASES TO LUNG [None]
  - METASTASES TO LYMPH NODES [None]
  - NECROSIS [None]
  - OESTROGEN RECEPTOR ASSAY POSITIVE [None]
